FAERS Safety Report 4475169-3 (Version None)
Quarter: 2004Q4

REPORT INFORMATION
  Report Type: 
  Country: None (occurrence: None)
  Receive Date: 20041013
  Receipt Date: 20041013
  Transmission Date: 20050328
  Serious: Yes (Hospitalization)
  Sender: FDA-Public Use
  Company Number: None

PATIENT
  Age: 45 Year
  Sex: Male

DRUGS (20)
  1. LISINOPRIL [Suspect]
     Indication: HYPERTENSION
     Dosage: 10 MG   DAILY   ORAL
     Route: 048
  2. PROGRAF [Concomitant]
  3. SIROLIMUS -RAPAMUNE- [Concomitant]
  4. PREDNISONE [Concomitant]
  5. LISINOPRIL [Concomitant]
  6. BACTRIM DS [Concomitant]
  7. LASIX [Concomitant]
  8. PRAVASTATIN -PRAVACHOL- [Concomitant]
  9. MYCELEX [Concomitant]
  10. OS-CAL [Concomitant]
  11. FOSAMAX [Concomitant]
  12. PREVACID [Concomitant]
  13. ASPIRIN [Concomitant]
  14. DOCUSATE -COLACE- [Concomitant]
  15. AMITRIPTYLINE -ELAVIL- [Concomitant]
  16. OXYCODONE [Concomitant]
  17. AMBIEN [Concomitant]
  18. GLIPIZIDE -GLUCOTROL XL- [Concomitant]
  19. MULTI-VITAMIN [Concomitant]
  20. NEURONTIN [Concomitant]

REACTIONS (4)
  - DYSPNOEA [None]
  - EYE SWELLING [None]
  - OROPHARYNGEAL SWELLING [None]
  - SWELLING FACE [None]
